FAERS Safety Report 12667479 (Version 1)
Quarter: 2016Q3

REPORT INFORMATION
  Report Type: Spontaneous
  Country: US (occurrence: US)
  Receive Date: 20160819
  Receipt Date: 20160819
  Transmission Date: 20161109
  Serious: No
  Sender: FDA-Public Use
  Company Number: US-PFIZER INC-2016366951

PATIENT
  Sex: Male

DRUGS (2)
  1. NICOTROL [Suspect]
     Active Substance: NICOTINE
     Indication: SMOKING CESSATION THERAPY
     Dosage: UNK
  2. NICOTROL [Suspect]
     Active Substance: NICOTINE
     Dosage: 41 MG, UNK

REACTIONS (4)
  - Poor quality drug administered [Unknown]
  - Abnormal dreams [Unknown]
  - Product quality issue [Unknown]
  - Nightmare [Recovered/Resolved]
